FAERS Safety Report 6293491-5 (Version None)
Quarter: 2009Q3

REPORT INFORMATION
  Report Type: 
  Country: None (occurrence: None)
  Receive Date: 20090803
  Receipt Date: 20090722
  Transmission Date: 20100115
  Serious: Yes (Other)
  Sender: FDA-Public Use
  Company Number: US-BIOGENIDEC-2009BI022722

PATIENT
  Age: 36 Year
  Sex: Female

DRUGS (13)
  1. AVONEX [Suspect]
     Indication: MULTIPLE SCLEROSIS
     Route: 030
     Dates: start: 19960101, end: 20030101
  2. AVONEX [Suspect]
     Route: 030
     Dates: start: 20030101, end: 20040101
  3. AVONEX [Suspect]
     Route: 030
     Dates: start: 20090717
  4. IBUPROFEN [Concomitant]
     Indication: PREMEDICATION
     Route: 048
  5. DRAMAMINE [Concomitant]
     Indication: PREMEDICATION
     Route: 048
  6. MAXZIDE [Concomitant]
     Indication: HYPERTENSION
     Route: 048
  7. LISINOPRIL [Concomitant]
     Indication: HYPERTENSION
     Route: 048
  8. TOPROL-XL [Concomitant]
     Indication: HYPERTENSION
     Route: 048
  9. FENTANYL TRANSDERMAL SYSTEM [Concomitant]
     Indication: BACK PAIN
  10. HYDROCODONE [Concomitant]
     Indication: BACK PAIN
     Route: 048
  11. TRAMADOL [Concomitant]
     Indication: BACK PAIN
     Route: 048
  12. LEXAPRO [Concomitant]
     Indication: DEPRESSION
     Route: 048
  13. WELLBUTRIN [Concomitant]
     Indication: DEPRESSION
     Route: 048

REACTIONS (10)
  - ANXIETY [None]
  - ASTHENIA [None]
  - DIABETES MELLITUS [None]
  - FEELING ABNORMAL [None]
  - INFLUENZA LIKE ILLNESS [None]
  - INJECTION SITE PAIN [None]
  - OVARIAN CYST [None]
  - SLEEP APNOEA SYNDROME [None]
  - UTERINE CYST [None]
  - VENOUS INJURY [None]
